FAERS Safety Report 17767217 (Version 10)
Quarter: 2022Q2

REPORT INFORMATION
  Report Type: Spontaneous
  Country: CL (occurrence: CL)
  Receive Date: 20200511
  Receipt Date: 20220526
  Transmission Date: 20220721
  Serious: Yes (Hospitalization)
  Sender: FDA-Public Use
  Company Number: CL-BIOMARINAP-CL-2020-129998

PATIENT
  Age: 23 Year
  Sex: Female
  Weight: 44 kg

DRUGS (3)
  1. ALDURAZYME [Suspect]
     Active Substance: LARONIDASE
     Indication: Mucopolysaccharidosis I
     Dosage: 0.527 MG/KG (23.2 MG/8 VIALS), QW
     Route: 041
  2. ALDURAZYME [Suspect]
     Active Substance: LARONIDASE
     Dosage: 23.2 MG (8 VIALS) WEEKLY
     Route: 041
  3. ALDURAZYME [Suspect]
     Active Substance: LARONIDASE
     Dosage: 0.58 MG/KG, QW
     Route: 041

REACTIONS (15)
  - Device occlusion [Recovered/Resolved]
  - Infusion related reaction [Recovered/Resolved]
  - Device malfunction [Not Recovered/Not Resolved]
  - Poor venous access [Unknown]
  - Pain [Unknown]
  - Catheter site pain [Unknown]
  - Nervousness [Unknown]
  - Complication associated with device [Unknown]
  - Burning sensation [Unknown]
  - Corneal disorder [Recovered/Resolved]
  - Suspected COVID-19 [Unknown]
  - Oropharyngeal pain [Unknown]
  - Cough [Unknown]
  - Pyrexia [Unknown]
  - Intentional dose omission [Unknown]

NARRATIVE: CASE EVENT DATE: 20200101
